FAERS Safety Report 13475257 (Version 14)
Quarter: 2019Q4

REPORT INFORMATION
  Report Type: Report from Study
  Country: US (occurrence: US)
  Receive Date: 20170424
  Receipt Date: 20191203
  Transmission Date: 20200122
  Serious: Yes (Death, Life-Threatening, Hospitalization, Other)
  Sender: FDA-Public Use
  Company Number: PHHY2017US060000

PATIENT
  Age: 4 Year
  Sex: Female
  Weight: 23.1 kg

DRUGS (30)
  1. KINERET [Suspect]
     Active Substance: ANAKINRA
     Dosage: 0.34 ML, QD
     Route: 065
     Dates: start: 201512, end: 201601
  2. KINERET [Suspect]
     Active Substance: ANAKINRA
     Dosage: UNK
     Route: 065
     Dates: start: 20160804, end: 20160812
  3. PREDNISOLONE. [Concomitant]
     Active Substance: PREDNISOLONE
     Dosage: 10 MG, TID
     Route: 065
  4. PROGRAF [Concomitant]
     Active Substance: TACROLIMUS
     Indication: STILL^S DISEASE
     Dosage: 3 MG, QD
     Route: 065
     Dates: start: 20170226
  5. ATARAX [Concomitant]
     Active Substance: HYDROXYZINE HYDROCHLORIDE
     Indication: PRODUCT USED FOR UNKNOWN INDICATION
     Dosage: UNK
     Route: 065
     Dates: start: 20160617
  6. IBUPROFEN. [Concomitant]
     Active Substance: IBUPROFEN
     Indication: PRODUCT USED FOR UNKNOWN INDICATION
     Route: 065
  7. ILARIS [Suspect]
     Active Substance: CANAKINUMAB
     Indication: STILL^S DISEASE
     Dosage: 100 MG, QD
     Route: 058
     Dates: start: 20161207, end: 20161231
  8. PROGRAF [Concomitant]
     Active Substance: TACROLIMUS
     Indication: LYMPHADENOPATHY
     Dosage: 4 ML, QD
     Route: 065
     Dates: start: 20170202
  9. ZANTAC [Suspect]
     Active Substance: RANITIDINE HYDROCHLORIDE
     Dosage: 2.5 ML, QD
     Route: 065
     Dates: start: 20160624, end: 20160701
  10. KEFLEX [Suspect]
     Active Substance: CEPHALEXIN
     Indication: DERMATITIS INFECTED
     Dosage: UNK
     Route: 065
     Dates: start: 20160611, end: 20160620
  11. LIDEX [Concomitant]
     Active Substance: FLUOCINONIDE
     Indication: CELLULITIS
     Dosage: UNK
     Route: 065
     Dates: start: 20160617
  12. KINERET [Suspect]
     Active Substance: ANAKINRA
     Indication: IMMUNOMODULATORY THERAPY
     Dosage: 0.34 ML, QD
     Route: 065
     Dates: start: 201511, end: 201512
  13. KINERET [Suspect]
     Active Substance: ANAKINRA
     Dosage: UNK
     Route: 065
     Dates: start: 20170403
  14. KINERET [Suspect]
     Active Substance: ANAKINRA
     Dosage: 0.34 ML, QD
     Route: 065
     Dates: start: 201601, end: 201603
  15. KINERET [Suspect]
     Active Substance: ANAKINRA
     Dosage: 0.34 ML, QD
     Route: 065
     Dates: start: 201603, end: 20160415
  16. KINERET [Suspect]
     Active Substance: ANAKINRA
     Dosage: 0.34 ML, QD
     Route: 065
     Dates: start: 20160415, end: 201605
  17. KINERET [Suspect]
     Active Substance: ANAKINRA
     Dosage: 100 MG, QD
     Route: 065
     Dates: start: 20160812, end: 20170226
  18. ACTEMRA [Suspect]
     Active Substance: TOCILIZUMAB
     Indication: STILL^S DISEASE
     Dosage: 280 MG, QD
     Route: 065
     Dates: start: 20160630, end: 20160729
  19. FIRST OMEPRAZOLE RX [Concomitant]
     Active Substance: OMEPRAZOLE
     Indication: PRODUCT USED FOR UNKNOWN INDICATION
     Dosage: 10 ML, QD
     Route: 065
     Dates: start: 20160627, end: 20160701
  20. MOTRIN [Concomitant]
     Active Substance: IBUPROFEN
     Indication: PAIN
     Dosage: PRN
     Route: 065
     Dates: start: 2017
  21. TACROLIMUS. [Concomitant]
     Active Substance: TACROLIMUS
     Indication: PRODUCT USED FOR UNKNOWN INDICATION
     Route: 065
  22. KINERET [Suspect]
     Active Substance: ANAKINRA
     Dosage: 100 MG, QD
     Route: 065
     Dates: start: 20170226, end: 201704
  23. FIRST OMEPRAZOLE RX [Concomitant]
     Active Substance: OMEPRAZOLE
     Dosage: 20 MG, QD
     Route: 065
     Dates: start: 20170226
  24. PREDNISOLONE. [Concomitant]
     Active Substance: PREDNISOLONE
     Dosage: 25 MG, UNK (15 MG AM AND 10 MG PM)
     Route: 065
  25. KINERET [Suspect]
     Active Substance: ANAKINRA
     Indication: STILL^S DISEASE
     Dosage: 0.34 ML, QD
     Route: 065
     Dates: start: 20150918, end: 201511
  26. KINERET [Suspect]
     Active Substance: ANAKINRA
     Dosage: 100 MG, QD
     Route: 065
     Dates: start: 201605, end: 20160624
  27. ZANTAC [Suspect]
     Active Substance: RANITIDINE HYDROCHLORIDE
     Indication: STILL^S DISEASE
     Dosage: 2.5 ML, QD
     Route: 065
     Dates: start: 20150917, end: 20150928
  28. KEFLEX [Suspect]
     Active Substance: CEPHALEXIN
     Indication: CELLULITIS
  29. PREDNISOLONE. [Concomitant]
     Active Substance: PREDNISOLONE
     Indication: STILL^S DISEASE
     Dosage: 39.9 MG, QD
     Route: 065
     Dates: start: 20170227
  30. VALCYTE [Concomitant]
     Active Substance: VALGANCICLOVIR HYDROCHLORIDE
     Indication: PROPHYLAXIS
     Route: 065

REACTIONS (36)
  - Arthritis [Recovered/Resolved]
  - Cellulitis [Unknown]
  - Cardiac arrest [Fatal]
  - Swollen tongue [Fatal]
  - Drug hypersensitivity [Unknown]
  - Cytomegalovirus test positive [Recovered/Resolved]
  - Lactic acidosis [Fatal]
  - Haemophagocytic lymphohistiocytosis [Not Recovered/Not Resolved]
  - Arthralgia [Unknown]
  - Pallor [Unknown]
  - Pain in extremity [Unknown]
  - Hepatic failure [Fatal]
  - Pyrexia [Recovered/Resolved]
  - Activated partial thromboplastin time prolonged [Unknown]
  - Chills [Unknown]
  - Pneumocystis jirovecii pneumonia [Unknown]
  - Blood pressure inadequately controlled [Unknown]
  - Obstructive airways disorder [Unknown]
  - Lymphadenopathy [Unknown]
  - International normalised ratio increased [Unknown]
  - Transaminases increased [Unknown]
  - Colitis [Fatal]
  - Intestinal dilatation [Fatal]
  - Infective glossitis [Fatal]
  - Staphylococcal infection [Fatal]
  - Inflammatory marker increased [Recovering/Resolving]
  - Intra-abdominal pressure increased [Unknown]
  - Gastrointestinal haemorrhage [Fatal]
  - Coagulopathy [Fatal]
  - Blood fibrinogen decreased [Unknown]
  - Serum ferritin increased [Unknown]
  - Malaise [Fatal]
  - Pyrexia [Fatal]
  - Dermatitis infected [Unknown]
  - Hypoaesthesia [Unknown]
  - Respiratory tract oedema [Not Recovered/Not Resolved]

NARRATIVE: CASE EVENT DATE: 20160628
